FAERS Safety Report 25139238 (Version 1)
Quarter: 2025Q1

REPORT INFORMATION
  Report Type: Report from Study
  Country: JP (occurrence: JP)
  Receive Date: 20250331
  Receipt Date: 20250331
  Transmission Date: 20250409
  Serious: Yes (Other)
  Sender: UCB
  Company Number: JP-UCBJ-CD202501048UCBPHAPROD

PATIENT
  Age: 50 Year
  Sex: Female

DRUGS (1)
  1. ZILUCOPLAN [Suspect]
     Active Substance: ZILUCOPLAN
     Indication: Myasthenia gravis
     Route: 058
     Dates: start: 2024

REACTIONS (3)
  - Thymoma [Unknown]
  - Laryngeal discomfort [Recovered/Resolved]
  - Eyelid ptosis [Unknown]

NARRATIVE: CASE EVENT DATE: 20241201
